FAERS Safety Report 5098725-0 (Version None)
Quarter: 2006Q3

REPORT INFORMATION
  Report Type: 
  Country: None (occurrence: None)
  Receive Date: 20060907
  Receipt Date: 20050131
  Transmission Date: 20061208
  Serious: Yes (Life-Threatening)
  Sender: FDA-Public Use
  Company Number: HQ3050901JUL2002

PATIENT
  Sex: Male

DRUGS (1)
  1. ENBREL [Suspect]
     Indication: RHEUMATOID ARTHRITIS
     Route: 065
     Dates: start: 19990810

REACTIONS (4)
  - CARDIAC FAILURE [None]
  - CARDIAC FIBRILLATION [None]
  - GASTROENTERITIS [None]
  - VENOUS THROMBOSIS [None]
